FAERS Safety Report 11927179 (Version 2)
Quarter: 2016Q1

REPORT INFORMATION
  Report Type: Spontaneous
  Country: JO (occurrence: JO)
  Receive Date: 20160119
  Receipt Date: 20160127
  Transmission Date: 20160526
  Serious: Yes (Hospitalization)
  Sender: FDA-Public Use
  Company Number: JO-WEST-WARD PHARMACEUTICALS CORP.-JO-H14001-16-00105

PATIENT
  Age: 20 Year
  Sex: Male

DRUGS (2)
  1. AMOCLAN [Suspect]
     Active Substance: AMOXICILLIN\CLAVULANIC ACID
     Dosage: 500 MG/125 MG
     Route: 048
     Dates: start: 20151014, end: 20151015
  2. AMOCLAN [Suspect]
     Active Substance: AMOXICILLIN\CLAVULANIC ACID
     Indication: INFECTION
     Dosage: 500 MG/125 MG
     Route: 048
     Dates: start: 20150921, end: 20150922

REACTIONS (3)
  - Speech disorder [Recovered/Resolved]
  - Swollen tongue [Recovered/Resolved]
  - Dyspnoea [Recovered/Resolved]

NARRATIVE: CASE EVENT DATE: 20150921
